FAERS Safety Report 5067173-1 (Version None)
Quarter: 2006Q3

REPORT INFORMATION
  Report Type: 
  Country: None (occurrence: None)
  Receive Date: 20060727
  Receipt Date: 20060713
  Transmission Date: 20061208
  Serious: Yes (Life-Threatening, Other)
  Sender: FDA-Public Use
  Company Number: 2006087580

PATIENT
  Age: 41 Year
  Sex: Female

DRUGS (1)
  1. GEODON [Suspect]
     Indication: SCHIZOPHRENIA
     Dosage: 80MG EVERY MORNING/100MG EVERY NIGHT (FREQUENCY:BID)
     Dates: start: 19990101

REACTIONS (1)
  - HEPATIC STEATOSIS [None]
